FAERS Safety Report 16173896 (Version 3)
Quarter: 2019Q2

REPORT INFORMATION
  Report Type: Report from Study
  Country: US (occurrence: US)
  Receive Date: 20190409
  Receipt Date: 20190626
  Transmission Date: 20190711
  Serious: Yes (Hospitalization)
  Sender: FDA-Public Use
  Company Number: US-TAIHO ONCOLOGY  INC-EU-2019-00839

PATIENT
  Age: 79 Year
  Sex: Male
  Weight: 93.07 kg

DRUGS (15)
  1. LONSURF [Suspect]
     Active Substance: TIPIRACIL HYDROCHLORIDE\TRIFLURIDINE
     Indication: COLON CANCER METASTATIC
     Dosage: CYCLE 3 COMPLETED ON 15/MAR/2019?LONSURF DISCONTINUED ON AN UNKNOWN DAY.
     Route: 048
     Dates: start: 201901, end: 2019
  2. COUMADIN [Concomitant]
     Active Substance: WARFARIN SODIUM
     Dosage: NI
  3. METHYLPRED [Concomitant]
     Active Substance: METHYLPREDNISOLONE
     Dosage: NI
  4. WARFARIN [Concomitant]
     Active Substance: WARFARIN
     Dosage: NI
  5. PANTOPRAZOLE [Concomitant]
     Active Substance: PANTOPRAZOLE
     Dosage: NI
  6. TRAZODONE [Concomitant]
     Active Substance: TRAZODONE HYDROCHLORIDE
     Dosage: NI
  7. LONSURF [Suspect]
     Active Substance: TIPIRACIL HYDROCHLORIDE\TRIFLURIDINE
     Indication: COLON CANCER
     Dosage: CURRENT CYCLE UNKNOWN STARTED ON AN UNKNOWN DATE.
     Route: 048
     Dates: start: 20181101
  8. AMLODIPINE [Concomitant]
     Active Substance: AMLODIPINE BESYLATE
     Dosage: NI
  9. FLOMAX [Concomitant]
     Active Substance: TAMSULOSIN HYDROCHLORIDE
     Dosage: NI
  10. COLCHICINE. [Concomitant]
     Active Substance: COLCHICINE
     Dosage: NI
  11. ONDANSETRON [Concomitant]
     Active Substance: ONDANSETRON
     Dosage: NI
  12. SUCRAFATE [Concomitant]
     Active Substance: SUCRALFATE
     Dosage: NI
  13. COREG [Concomitant]
     Active Substance: CARVEDILOL
     Dosage: NI
  14. CYCLOBENZAPR [Concomitant]
     Active Substance: CYCLOBENZAPRINE
     Dosage: NI
  15. PROTONIX [Concomitant]
     Active Substance: PANTOPRAZOLE SODIUM
     Dosage: NI

REACTIONS (7)
  - Asthenia [Recovering/Resolving]
  - White blood cell count decreased [Not Recovered/Not Resolved]
  - Abdominal pain upper [Not Recovered/Not Resolved]
  - Diarrhoea [Not Recovered/Not Resolved]
  - Fatigue [Unknown]
  - Orthostatic hypotension [Not Recovered/Not Resolved]
  - Red blood cell count decreased [Unknown]

NARRATIVE: CASE EVENT DATE: 2019
